FAERS Safety Report 6289064-0 (Version None)
Quarter: 2009Q3

REPORT INFORMATION
  Report Type: 
  Country: None (occurrence: None)
  Receive Date: 20090728
  Receipt Date: 20090720
  Transmission Date: 20100115
  Serious: Yes (Other)
  Sender: FDA-Public Use
  Company Number: CIP09001938

PATIENT
  Age: 72 Year
  Sex: Female

DRUGS (3)
  1. ACTONEL [Suspect]
     Dosage: 35 MG ONCE A WEEK, ORAL
     Route: 048
  2. CALCIUM (CALCIUM) [Concomitant]
  3. ERGOCALCIFEROL [Concomitant]

REACTIONS (1)
  - ANGLE CLOSURE GLAUCOMA [None]
